FAERS Safety Report 18554755 (Version 1)
Quarter: 2020Q4

REPORT INFORMATION
  Report Type: Spontaneous
  Country: IT (occurrence: IT)
  Receive Date: 20201127
  Receipt Date: 20201127
  Transmission Date: 20210114
  Serious: Yes (Other)
  Sender: FDA-Public Use
  Company Number: NVSC2020IT307947

PATIENT
  Age: 1 Year
  Sex: Male
  Weight: 10 kg

DRUGS (8)
  1. ETOPOSIDE. [Suspect]
     Active Substance: ETOPOSIDE
     Indication: EWING^S SARCOMA
     Dosage: 33.99 MG, QD
     Route: 042
     Dates: start: 20200422, end: 20200427
  2. MYELOSTIM [Concomitant]
     Active Substance: LENOGRASTIM
     Indication: NEUTROPENIA
     Dosage: 0.2 ML, QD
     Route: 058
     Dates: start: 20200430, end: 20200505
  3. HOLOXAN [Suspect]
     Active Substance: IFOSFAMIDE
     Indication: EWING^S SARCOMA
     Dosage: 432 MG, QD
     Route: 042
     Dates: start: 20200422, end: 20200427
  4. NORMASE [Concomitant]
     Indication: CONSTIPATION
     Route: 048
     Dates: start: 20200502
  5. ZOFRAN [Suspect]
     Active Substance: ONDANSETRON HYDROCHLORIDE
     Indication: PREMEDICATION
     Dosage: 9 MG, QD
     Route: 042
     Dates: start: 20200422, end: 20200427
  6. DECADRON [Suspect]
     Active Substance: DEXAMETHASONE
     Indication: PREMEDICATION
     Dosage: 2 MG (TOTAL)
     Route: 042
     Dates: start: 20200422, end: 20200422
  7. TRIMETON [Suspect]
     Active Substance: CHLORPHENIRAMINE MALEATE
     Indication: PREMEDICATION
     Dosage: 4 MG, QD
     Route: 042
     Dates: start: 20200422, end: 20200427
  8. GLYCEROL [Concomitant]
     Active Substance: GLYCERIN
     Indication: CONSTIPATION
     Dosage: 1 DF (TOTAL)
     Route: 054
     Dates: start: 20200502, end: 20200502

REACTIONS (2)
  - Off label use [Recovering/Resolving]
  - Bone pain [Recovering/Resolving]

NARRATIVE: CASE EVENT DATE: 20200503
